FAERS Safety Report 24554972 (Version 4)
Quarter: 2025Q1

REPORT INFORMATION
  Report Type: Spontaneous
  Country: US (occurrence: US)
  Receive Date: 20241028
  Receipt Date: 20250320
  Transmission Date: 20250408
  Serious: No
  Sender: GLAXOSMITHKLINE
  Company Number: US-GSK-US2024128610

PATIENT
  Sex: Female
  Weight: 88.435 kg

DRUGS (1)
  1. NUCALA [Suspect]
     Active Substance: MEPOLIZUMAB
     Indication: Product used for unknown indication
     Dates: start: 20240517

REACTIONS (9)
  - Feeling abnormal [Not Recovered/Not Resolved]
  - Injection site pain [Recovered/Resolved]
  - Cough [Unknown]
  - Burning sensation [Recovered/Resolved]
  - Productive cough [Unknown]
  - Nasal disorder [Unknown]
  - Pain [Recovered/Resolved]
  - Product dose omission issue [Unknown]
  - Product complaint [Unknown]
